FAERS Safety Report 4894926-2 (Version None)
Quarter: 2006Q1

REPORT INFORMATION
  Report Type: 
  Country: None (occurrence: None)
  Receive Date: 20060130
  Receipt Date: 20050317
  Transmission Date: 20060701
  Serious: No
  Sender: FDA-Public Use
  Company Number: US-BRISTOL-MYERS SQUIBB COMPANY-12902110

PATIENT
  Sex: Male
  Weight: 64 kg

DRUGS (3)
  1. GLUCOPHAGE [Suspect]
  2. LEVOXYL [Concomitant]
  3. ASPIRIN [Concomitant]

REACTIONS (1)
  - DIARRHOEA [None]
